FAERS Safety Report 24292459 (Version 1)
Quarter: 2024Q3

REPORT INFORMATION
  Report Type: Spontaneous
  Country: CA (occurrence: CA)
  Receive Date: 20240906
  Receipt Date: 20240906
  Transmission Date: 20241016
  Serious: Yes (Death, Life-Threatening)
  Sender: FRESENIUS KABI
  Company Number: CA-FreseniusKabi-FK202413129

PATIENT
  Age: 84 Year
  Sex: Male
  Weight: 49 kg

DRUGS (11)
  1. HEPARIN SODIUM [Suspect]
     Active Substance: HEPARIN SODIUM
     Indication: Pulmonary embolism
     Dosage: FORM OF ADMIN-SOLUTION INTRAVENOUS
     Route: 042
  2. ELIQUIS [Suspect]
     Active Substance: APIXABAN
     Indication: Pulmonary embolism
     Dosage: FOA-TABLET
     Route: 048
  3. ACETAMINOPHEN [Concomitant]
     Active Substance: ACETAMINOPHEN
     Indication: Product used for unknown indication
     Dosage: FOA-NOT SPECIFIED
  4. AZITHROMYCIN [Concomitant]
     Active Substance: AZITHROMYCIN
     Indication: Product used for unknown indication
     Dosage: FOA-NOT SPECIFIED
  5. CEFTRIAXONE SODIUM [Concomitant]
     Active Substance: CEFTRIAXONE SODIUM
     Indication: Product used for unknown indication
     Dosage: FOA-NOT SPECIFIED
  6. GLYCERIN [Concomitant]
     Active Substance: GLYCERIN
     Indication: Product used for unknown indication
     Dosage: FOA-SUPPOSITORY
  7. POLYETHYLENE GLYCOL 3350 [Concomitant]
     Active Substance: POLYETHYLENE GLYCOL 3350
     Indication: Product used for unknown indication
     Dosage: FOA-POWDER FOR SOLUTION ORAL
  8. NYSTATIN [Concomitant]
     Active Substance: NYSTATIN
     Indication: Product used for unknown indication
     Dosage: FOA-TABLETS
  9. MORPHINE [Concomitant]
     Active Substance: MORPHINE
     Indication: Product used for unknown indication
     Dosage: FOA-NOT SPECIFIED
  10. NYSTATIN ORAL SUSPENSION 100000 UNIT/ML USP [Concomitant]
     Indication: Product used for unknown indication
     Dosage: FOA-SUSPENSION ORAL
  11. SENNOSIDES [Concomitant]
     Active Substance: SENNOSIDES
     Indication: Product used for unknown indication
     Dosage: FOA-NOT SPECIFIED

REACTIONS (7)
  - Anaemia [Fatal]
  - Faeces discoloured [Fatal]
  - Haemoglobin decreased [Fatal]
  - Haemorrhage [Fatal]
  - Oesophageal injury [Fatal]
  - Palliative care [Fatal]
  - Thrombosis [Fatal]
